FAERS Safety Report 21546623 (Version 1)
Quarter: 2022Q4

REPORT INFORMATION
  Report Type: Report from Study
  Country: US (occurrence: US)
  Receive Date: 20221103
  Receipt Date: 20221103
  Transmission Date: 20230113
  Serious: No
  Sender: FDA-Public Use
  Company Number: US-ABBVIE-21K-163-4136708-00

PATIENT
  Age: 77 Year
  Sex: Male

DRUGS (3)
  1. IMBRUVICA [Suspect]
     Active Substance: IBRUTINIB
     Indication: Mantle cell lymphoma
     Route: 048
     Dates: start: 20180802
  2. INFLUENZA VIRUS VACCINE [Concomitant]
     Active Substance: INFLUENZA VIRUS VACCINE
     Indication: Product used for unknown indication
  3. covid vaccine [Concomitant]
     Indication: COVID-19 immunisation
     Dosage: TIME INTERVAL: TOTAL: BOOSTER DOSE

REACTIONS (11)
  - Emotional disorder [Unknown]
  - Weight decreased [Unknown]
  - COVID-19 [Unknown]
  - Pruritus [Unknown]
  - Dyspepsia [Unknown]
  - Onychoclasis [Not Recovered/Not Resolved]
  - Skin fissures [Unknown]
  - Epistaxis [Recovering/Resolving]
  - Renal impairment [Unknown]
  - Gastrointestinal inflammation [Unknown]
  - Muscle spasms [Not Recovered/Not Resolved]

NARRATIVE: CASE EVENT DATE: 20211001
